FAERS Safety Report 5289125-9 (Version None)
Quarter: 2007Q1

REPORT INFORMATION
  Report Type: 
  Country: None (occurrence: None)
  Receive Date: 20070124
  Receipt Date: 20061107
  Transmission Date: 20070707
  Serious: Yes (Hospitalization)
  Sender: FDA-Public Use
  Company Number: US200611002580

PATIENT
  Age: 91 Year
  Sex: Female

DRUGS (4)
  1. FORTEO [Suspect]
     Indication: OSTEOPOROSIS
     Dates: start: 20060101
  2. FORTEO [Concomitant]
  3. PULMICORT [Concomitant]
  4. ALBUTEROL [Concomitant]

REACTIONS (3)
  - FALL [None]
  - PNEUMONIA [None]
  - WOUND INFECTION [None]
